FAERS Safety Report 5755648-9 (Version None)
Quarter: 2008Q2

REPORT INFORMATION
  Report Type: 
  Country: None (occurrence: None)
  Receive Date: 20080602
  Receipt Date: 20080521
  Transmission Date: 20081010
  Serious: Yes (Hospitalization)
  Sender: FDA-Public Use
  Company Number: FR-ROCHE-566101

PATIENT
  Sex: Male
  Weight: 84 kg

DRUGS (6)
  1. XELODA [Suspect]
     Dosage: FREQUENCY AND DOSAGE FORM NOT REPORTED.
     Route: 048
     Dates: start: 20071129
  2. RADIOTHERAPY MIXTURE [Suspect]
     Indication: DRUG USE FOR UNKNOWN INDICATION
     Dosage: DRUG NAME REPORTED AS RADIOTHERAPY. UNIT REPORTED AS GY. FREQUENCY AND DOSAGE FORM NOT REPORTED.
     Route: 065
     Dates: start: 20071129
  3. RADIOTHERAPY MIXTURE [Suspect]
     Dosage: DRUG NAME REPORTED AS RADIOTHERAPY. UNIT REPORTED AS GY. FREQUENCY AND DOSAGE FORM NOT REPORTED.
     Route: 065
     Dates: start: 20071129
  4. RADIOTHERAPY MIXTURE [Suspect]
     Dosage: DRUG NAME REPORTED AS RADIOTHERAPY. UNIT REPORTED AS GY. FREQUENCY AND DOSAGE FORM NOT REPORTED.
     Route: 065
     Dates: start: 20071129
  5. RADIOTHERAPY MIXTURE [Suspect]
     Dosage: DRUG NAME REPORTED AS RADIOTHERAPY. UNIT REPORTED AS GY. FREQUENCY AND DOSAGE FORM NOT REPORTED.
     Route: 065
     Dates: start: 20071129
  6. RADIOTHERAPY MIXTURE [Suspect]
     Dosage: DRUG NAME REPORTED AS RADIOTHERAPY. UNIT REPORTED AS GY. FREQUENCY AND DOSAGE FORM NOT REPORTED.
     Route: 065
     Dates: start: 20071129

REACTIONS (1)
  - ANASTOMOTIC COMPLICATION [None]
